FAERS Safety Report 9644859 (Version 2)
Quarter: 2013Q4

REPORT INFORMATION
  Report Type: Report from Study
  Country: NL (occurrence: NL)
  Receive Date: 20131025
  Receipt Date: 20131025
  Transmission Date: 20140711
  Serious: Yes (Other)
  Sender: FDA-Public Use
  Company Number: PHHY2013NL083103

PATIENT
  Sex: Female

DRUGS (3)
  1. ZOMETA [Suspect]
     Indication: BREAST CANCER METASTATIC
     Dosage: 4MG PER 100ML ONCE EVERY PER 4 WEEKS
     Route: 041
  2. ZOMETA [Suspect]
     Dosage: 4MG PER 100ML ONCE EVERY PER 4 WEEKS
     Route: 041
     Dates: start: 20130603
  3. ZOMETA [Suspect]
     Dosage: 4MG PER 100ML ONCE EVERY PER 4 WEEKS
     Route: 041
     Dates: start: 20130731

REACTIONS (2)
  - Hip deformity [Not Recovered/Not Resolved]
  - Bone pain [Not Recovered/Not Resolved]
